FAERS Safety Report 4634087-8 (Version None)
Quarter: 2005Q2

REPORT INFORMATION
  Report Type: 
  Country: None (occurrence: None)
  Receive Date: 20050413
  Receipt Date: 20050404
  Transmission Date: 20051028
  Serious: Yes (Other)
  Sender: FDA-Public Use
  Company Number: US-GLAXOSMITHKLINE-A0552629A

PATIENT
  Age: 23 Year
  Sex: Male

DRUGS (2)
  1. PAXIL CR [Suspect]
     Indication: ANXIETY
     Dosage: 25MG PER DAY
     Route: 048
     Dates: start: 20020101
  2. XANAX [Concomitant]
     Indication: DRUG USE FOR UNKNOWN INDICATION
     Route: 065

REACTIONS (3)
  - AGGRESSION [None]
  - HEAT RASH [None]
  - MOOD SWINGS [None]
